FAERS Safety Report 6765566-5 (Version None)
Quarter: 2010Q2

REPORT INFORMATION
  Report Type: 
  Country: None (occurrence: None)
  Receive Date: 20100611
  Receipt Date: 20100608
  Transmission Date: 20101027
  Serious: Yes (Death)
  Sender: FDA-Public Use
  Company Number: PHHY2010CA37102

PATIENT
  Age: 79 Year
  Sex: Female

DRUGS (7)
  1. EXELON [Suspect]
     Dosage: 3 MG, BID
  2. LIPITOR [Suspect]
     Dosage: 20 MG, QD
     Route: 048
  3. ACETYLSALICYLIC ACID [Concomitant]
     Dosage: UNK,UNK
  4. ATIVAN [Concomitant]
     Dosage: UNK,UNK
  5. MEPERIDINE HCL [Concomitant]
     Dosage: UNK,UNK
  6. PAXIL [Concomitant]
     Dosage: UNK,UNK
  7. SYNTHROID [Concomitant]
     Dosage: UNK,UNK

REACTIONS (8)
  - CEREBROVASCULAR DISORDER [None]
  - COUGH [None]
  - DYSPHAGIA [None]
  - ELECTROLYTE IMBALANCE [None]
  - HAEMOGLOBIN DECREASED [None]
  - HYPOTENSION [None]
  - LEUKOPENIA [None]
  - PLATELET PRODUCTION DECREASED [None]
